FAERS Safety Report 8992252 (Version 2)
Quarter: 2013Q2

REPORT INFORMATION
  Report Type: Spontaneous
  Country: US (occurrence: US)
  Receive Date: 20121231
  Receipt Date: 20130430
  Transmission Date: 20140414
  Serious: Yes (Other)
  Sender: FDA-Public Use
  Company Number: US-ELI_LILLY_AND_COMPANY-US201203006158

PATIENT
  Age: 60 Year
  Sex: Female
  Weight: 48.53 kg

DRUGS (13)
  1. FORTEO [Suspect]
     Indication: OSTEOPOROSIS
     Dosage: 20 UG, QD
     Route: 058
     Dates: start: 20120212, end: 201203
  2. FORTEO [Suspect]
     Dosage: 20 UG, QD
  3. FORTEO [Suspect]
     Dosage: 20 UG, QD
  4. VICODIN [Concomitant]
  5. SERTRALINE [Concomitant]
  6. TRAZODONE [Concomitant]
  7. METFORMIN [Concomitant]
  8. GABAPENTIN [Concomitant]
  9. OMEPRAZOLE [Concomitant]
  10. GLIPIZIDE [Concomitant]
  11. SULINDAC [Concomitant]
  12. CYCLOBENZAPRINE [Concomitant]
  13. LOVASTATIN [Concomitant]

REACTIONS (6)
  - Oesophageal carcinoma [Unknown]
  - Skin cancer [Recovered/Resolved]
  - Rib fracture [Unknown]
  - Fracture pain [Unknown]
  - Movement disorder [Unknown]
  - Fall [Unknown]
